FAERS Safety Report 7680104-0 (Version None)
Quarter: 2011Q3

REPORT INFORMATION
  Report Type: 
  Country: None (occurrence: None)
  Receive Date: 20110812
  Receipt Date: 20110809
  Transmission Date: 20111222
  Serious: Yes (Other)
  Sender: FDA-Public Use
  Company Number: US-PFIZER INC-2009167216

PATIENT
  Sex: Female

DRUGS (1)
  1. LYRICA [Suspect]
     Indication: NERVE INJURY
     Dosage: UNK

REACTIONS (17)
  - DISTURBANCE IN ATTENTION [None]
  - INCREASED APPETITE [None]
  - CONFUSIONAL STATE [None]
  - NERVOUSNESS [None]
  - HYPOAESTHESIA [None]
  - ERYTHEMA [None]
  - MUSCULOSKELETAL DISCOMFORT [None]
  - VAGINAL DISCHARGE [None]
  - WEIGHT INCREASED [None]
  - BURNING SENSATION [None]
  - WEIGHT DECREASED [None]
  - FEELING ABNORMAL [None]
  - COELIAC DISEASE [None]
  - HYPERHIDROSIS [None]
  - SOMNOLENCE [None]
  - PARAESTHESIA [None]
  - COLD SWEAT [None]
